FAERS Safety Report 8899513 (Version 1)
Quarter: 2012Q4

REPORT INFORMATION
  Report Type: 
  Country: SE (occurrence: SE)
  Receive Date: 20121109
  Receipt Date: 20121109
  Transmission Date: 20130627
  Serious: Yes (Hospitalization)
  Sender: FDA-Public Use
  Company Number: SE-PFIZER INC-2012275050

PATIENT
  Age: 59 Year
  Sex: Male
  Weight: 102 kg

DRUGS (9)
  1. GENOTROPIN [Suspect]
     Indication: GROWTH HORMONE DEFICIENCY
     Dosage: UNK, 1x/day (7 injections/week)
     Route: 058
     Dates: start: 19970806
  2. LEVOTHYROXINE [Concomitant]
     Indication: TSH DECREASED
     Dosage: UNK
     Dates: start: 19940201
  3. LEVOTHYROXINE [Concomitant]
     Indication: PRIMARY HYPOTHYROIDISM
  4. CORTISONE ACETATE [Concomitant]
     Indication: CORTICOTROPHIN DECREASED
     Dosage: UNK
     Dates: start: 19940201
  5. TESTOSTERONE [Concomitant]
     Indication: LUTEINISING HORMONE DEFICIENCY
     Dosage: UNK
     Dates: start: 19940201
  6. TESTOSTERONE [Concomitant]
     Indication: FOLLICLE-STIMULATING HORMONE DEFICIENCY
  7. TESTOSTERONE [Concomitant]
     Indication: TESTICULAR HYPOGONADISM
  8. ZYRLEX [Concomitant]
     Indication: ANTIHISTAMINE THERAPY
     Dosage: UNK
     Dates: start: 20000505
  9. FLUTIDE FOR INHALATION [Concomitant]
     Indication: ASTHMA
     Dosage: UNK
     Dates: start: 20000505

REACTIONS (1)
  - Pneumonia [Unknown]
